FAERS Safety Report 6860353-1 (Version None)
Quarter: 2010Q3

REPORT INFORMATION
  Report Type: 
  Country: None (occurrence: None)
  Receive Date: 20100719
  Receipt Date: 20100719
  Transmission Date: 20110219
  Serious: Yes (Hospitalization, Other)
  Sender: FDA-Public Use
  Company Number: None

PATIENT
  Age: 58 Year
  Sex: Female
  Weight: 65.7716 kg

DRUGS (1)
  1. LEVAQUIN [Suspect]
     Indication: LOCALISED INFECTION
     Dosage: 500MG 1X DAILY PO DAYS
     Route: 048
     Dates: start: 20100522, end: 20100525

REACTIONS (10)
  - APHASIA [None]
  - BURNING SENSATION [None]
  - CONFUSIONAL STATE [None]
  - FEELING ABNORMAL [None]
  - GAIT DISTURBANCE [None]
  - IMPAIRED WORK ABILITY [None]
  - INSOMNIA [None]
  - NEUROPATHY PERIPHERAL [None]
  - SPEECH DISORDER [None]
  - TENDON PAIN [None]
